FAERS Safety Report 5061079-X (Version None)
Quarter: 2006Q3

REPORT INFORMATION
  Report Type: 
  Country: None (occurrence: None)
  Receive Date: 20060720
  Receipt Date: 20060706
  Transmission Date: 20061208
  Serious: Yes (Death)
  Sender: FDA-Public Use
  Company Number: US-2006-018114

PATIENT
  Age: 1 Day

DRUGS (4)
  1. BETASERON [Suspect]
     Dosage: SEE IMAGE
     Dates: start: 19970616, end: 20030110
  2. BETASERON [Suspect]
     Dosage: SEE IMAGE
     Dates: start: 20040211, end: 20040809
  3. BETASERON [Suspect]
     Dosage: SEE IMAGE
     Dates: start: 20040901, end: 20050804
  4. BETASERON [Suspect]
     Dosage: SEE IMAGE
     Dates: start: 20060325, end: 20060701

REACTIONS (2)
  - DEATH NEONATAL [None]
  - DRUG EXPOSURE DURING PREGNANCY [None]
